FAERS Safety Report 20560363 (Version 1)
Quarter: 2022Q1

REPORT INFORMATION
  Report Type: Report from Study
  Country: US (occurrence: US)
  Receive Date: 20220307
  Receipt Date: 20220307
  Transmission Date: 20220423
  Serious: Yes (Other)
  Sender: FDA-Public Use
  Company Number: US-PFIZER INC-202200328239

PATIENT
  Age: 17 Year
  Sex: Male
  Weight: 98.2 kg

DRUGS (5)
  1. TEMSIROLIMUS [Suspect]
     Active Substance: TEMSIROLIMUS
     Dosage: TOTAL DOSE ADMINISTERED THIS COURSE (DOSE): 50 MG
     Dates: end: 20220117
  2. CAMPTOSAR [Suspect]
     Active Substance: IRINOTECAN HYDROCHLORIDE
     Dosage: TOTAL DOSE ADMINISTERED THIS COURSE (DOSE): 500 MG
     Dates: end: 20220114
  3. VINCRISTINE SULFATE [Suspect]
     Active Substance: VINCRISTINE SULFATE
     Dosage: TOTAL DOSE ADMINISTERED THIS COURSE (DOSE): 4 MG
     Dates: end: 20220117
  4. CYCLOPHOSPHAMIDE [Suspect]
     Active Substance: CYCLOPHOSPHAMIDE
     Dosage: TOTAL DOSE ADMINISTERED THIS COURSE (DOSE): 0 MG
     Dates: end: 20211220
  5. DACTINOMYCIN [Suspect]
     Active Substance: DACTINOMYCIN
     Dosage: TOTAL DOSE ADMINISTERED THIS COURSE (DOSE): 0 MG
     Dates: end: 20211220

REACTIONS (1)
  - Anal inflammation [Recovering/Resolving]

NARRATIVE: CASE EVENT DATE: 20220125
